FAERS Safety Report 7676542-2 (Version None)
Quarter: 2011Q2

REPORT INFORMATION
  Report Type: 
  Country: None (occurrence: None)
  Receive Date: 20110615
  Receipt Date: 20110615
  Transmission Date: 20111010
  Serious: Yes (Hospitalization)
  Sender: FDA-Public Use
  Company Number: None

PATIENT
  Sex: Female
  Weight: 135.1719 kg

DRUGS (1)
  1. ADCIRCA [Suspect]
     Dosage: 20 MG QD PO
     Route: 048
     Dates: start: 20101101

REACTIONS (4)
  - HAEMORRHAGE [None]
  - BLOOD COUNT ABNORMAL [None]
  - FATIGUE [None]
  - DYSPNOEA [None]
